FAERS Safety Report 14205658 (Version 1)
Quarter: 2017Q4

REPORT INFORMATION
  Report Type: Spontaneous
  Country: JP (occurrence: JP)
  Receive Date: 20171120
  Receipt Date: 20171120
  Transmission Date: 20180321
  Serious: Yes (Hospitalization, Other)
  Sender: FDA-Public Use
  Company Number: JP-ELI_LILLY_AND_COMPANY-JP201711006890

PATIENT
  Age: 56 Year
  Sex: Male
  Weight: 72 kg

DRUGS (4)
  1. CPT-11 [Suspect]
     Active Substance: IRINOTECAN
     Indication: COLORECTAL CANCER
     Dosage: 150 MG/M2, UNKNOWN
     Route: 065
     Dates: start: 20170608, end: 20171013
  2. TS-1 [Suspect]
     Active Substance: GIMERACIL\OTERACIL\TEGAFUR
     Indication: COLORECTAL CANCER
     Dosage: 120 MG, UNKNOWN
     Route: 048
     Dates: start: 20170608, end: 20171013
  3. ERBITUX [Suspect]
     Active Substance: CETUXIMAB
     Indication: COLORECTAL CANCER
     Dosage: 400 MG/M2, UNKNOWN
     Route: 041
     Dates: start: 20170608, end: 20170608
  4. ERBITUX [Suspect]
     Active Substance: CETUXIMAB
     Dosage: 250 MG/M2, WEEKLY (1/W)
     Route: 041
     Dates: start: 201706, end: 20171013

REACTIONS (9)
  - Gallbladder oedema [Unknown]
  - Skin infection [Not Recovered/Not Resolved]
  - Pulmonary fibrosis [Unknown]
  - Dermatitis acneiform [Not Recovered/Not Resolved]
  - Atelectasis [Unknown]
  - Renal cyst [Unknown]
  - Lymphatic obstruction [Unknown]
  - Ascites [Unknown]
  - Off label use [Unknown]

NARRATIVE: CASE EVENT DATE: 20170616
